FAERS Safety Report 14744662 (Version 1)
Quarter: 2018Q2

REPORT INFORMATION
  Report Type: Spontaneous
  Country: CA (occurrence: CA)
  Receive Date: 20180411
  Receipt Date: 20180411
  Transmission Date: 20180711
  Serious: Yes (Death)
  Sender: FDA-Public Use
  Company Number: CA-ROCHE-2103401

PATIENT
  Age: 68 Year
  Sex: Female
  Weight: 70 kg

DRUGS (8)
  1. RITUXAN [Suspect]
     Active Substance: RITUXIMAB
     Indication: DIFFUSE LARGE B-CELL LYMPHOMA
     Route: 042
  2. RITUXAN [Suspect]
     Active Substance: RITUXIMAB
     Indication: B-CELL LYMPHOMA
     Route: 042
  3. TOPICORT (CANADA) [Concomitant]
  4. BETAHISTINE [Concomitant]
     Active Substance: BETAHISTINE
  5. PANTOPRAZOLE [Concomitant]
     Active Substance: PANTOPRAZOLE
  6. ASA [Concomitant]
     Active Substance: ASPIRIN
  7. EPREX [Concomitant]
     Active Substance: ERYTHROPOIETIN
     Route: 065
  8. METOPROLOL. [Concomitant]
     Active Substance: METOPROLOL

REACTIONS (13)
  - Ataxia [Fatal]
  - Lymphadenopathy [Fatal]
  - JC virus infection [Fatal]
  - Nuclear magnetic resonance imaging brain abnormal [Fatal]
  - Dysarthria [Fatal]
  - Parvovirus B19 test positive [Fatal]
  - Condition aggravated [Fatal]
  - Lymphoma [Fatal]
  - Nervous system disorder [Fatal]
  - Vertigo [Fatal]
  - Parvovirus infection [Fatal]
  - Dizziness [Fatal]
  - Positron emission tomogram abnormal [Fatal]
